FAERS Safety Report 8156659-9 (Version None)
Quarter: 2012Q1

REPORT INFORMATION
  Report Type: 
  Country: None (occurrence: None)
  Receive Date: 20120222
  Receipt Date: 20120214
  Transmission Date: 20120608
  Serious: Yes (Hospitalization)
  Sender: FDA-Public Use
  Company Number: US-BAYER-2011-107448

PATIENT
  Age: 32 Year
  Sex: Female
  Weight: 60.317 kg

DRUGS (5)
  1. METHADONE HCL [Concomitant]
     Indication: FIBROMYALGIA
     Dosage: 30 MG, TID
     Route: 048
     Dates: start: 20000101
  2. HERBALLY BASED CONTRACEPTIVE [Concomitant]
  3. NSAID'S [Concomitant]
  4. ASCORBIC ACID [Concomitant]
  5. YASMIN [Suspect]
     Dosage: UNK
     Route: 048
     Dates: start: 20030922

REACTIONS (7)
  - PAIN [None]
  - MONOPARESIS [None]
  - TRANSIENT ISCHAEMIC ATTACK [None]
  - AMENORRHOEA [None]
  - MEMORY IMPAIRMENT [None]
  - EMOTIONAL DISTRESS [None]
  - MIGRAINE [None]
